FAERS Safety Report 15191592 (Version 2)
Quarter: 2019Q2

REPORT INFORMATION
  Report Type: Report from Study
  Country: BR (occurrence: BR)
  Receive Date: 20180724
  Receipt Date: 20190507
  Transmission Date: 20190711
  Serious: Yes (Hospitalization)
  Sender: FDA-Public Use
  Company Number: BR-UCBSA-2018031410

PATIENT
  Age: 1 Year
  Sex: Female
  Weight: 8 kg

DRUGS (5)
  1. LEVETIRACETAM. [Suspect]
     Active Substance: LEVETIRACETAM
     Indication: SEIZURE
     Dosage: 1.5 ML, 2X/DAY (BID)
     Route: 048
     Dates: start: 20180412, end: 2018
  2. LEVETIRACETAM. [Suspect]
     Active Substance: LEVETIRACETAM
     Dosage: 2.25 MG, 2X/DAY (BID)
     Route: 048
     Dates: start: 2018
  3. VALPAKINE [Concomitant]
     Active Substance: VALPROATE SODIUM
     Indication: PRODUCT USED FOR UNKNOWN INDICATION
  4. LEVETIRACETAM. [Suspect]
     Active Substance: LEVETIRACETAM
     Dosage: 150 MILLILITER,(100MILLIGRAM ) 3X/DAY (TID)
     Route: 048
  5. DEPAKENE [Concomitant]
     Active Substance: VALPROIC ACID
     Indication: SEIZURE
     Dosage: 200 MG, 2X/DAY (BID)
     Route: 048
     Dates: start: 20170820

REACTIONS (4)
  - Decreased appetite [Not Recovered/Not Resolved]
  - Blood glucose decreased [Recovered/Resolved]
  - Off label use [Unknown]
  - Seizure [Recovered/Resolved]

NARRATIVE: CASE EVENT DATE: 2018
